FAERS Safety Report 14122146 (Version 1)
Quarter: 2017Q4

REPORT INFORMATION
  Report Type: Spontaneous
  Country: NL (occurrence: NL)
  Receive Date: 20171024
  Receipt Date: 20171024
  Transmission Date: 20180321
  Serious: Yes (Other)
  Sender: FDA-Public Use
  Company Number: NL-TERSERA THERAPEUTICS, LLC-2031331

PATIENT
  Age: 62 Year
  Sex: Male

DRUGS (7)
  1. NICOTINELL [Concomitant]
     Active Substance: NICOTINE
     Route: 048
  2. OXAZEPAM. [Concomitant]
     Active Substance: OXAZEPAM
     Route: 048
  3. FOLIC ACID. [Concomitant]
     Active Substance: FOLIC ACID
     Route: 048
  4. ACETYLSALICYLZUUR [Concomitant]
     Active Substance: ASPIRIN
     Route: 048
  5. NICOTINELL [Concomitant]
     Active Substance: NICOTINE
     Route: 062
  6. OXYCODONE HYDROCHLORIDE. [Concomitant]
     Active Substance: OXYCODONE HYDROCHLORIDE
     Route: 048
  7. ZOLADEX [Suspect]
     Active Substance: GOSERELIN ACETATE
     Indication: PROSTATE CANCER
     Route: 058
     Dates: start: 20170322, end: 20170912

REACTIONS (3)
  - Suicidal ideation [Recovered/Resolved]
  - Emotional disorder [Recovered/Resolved]
  - Erectile dysfunction [Recovered/Resolved]

NARRATIVE: CASE EVENT DATE: 20170412
